FAERS Safety Report 4562968-2 (Version None)
Quarter: 2005Q1

REPORT INFORMATION
  Report Type: 
  Country: None (occurrence: None)
  Receive Date: 20050121
  Receipt Date: 20050107
  Transmission Date: 20050727
  Serious: Yes (Other)
  Sender: FDA-Public Use
  Company Number: 2005009502

PATIENT
  Sex: Male

DRUGS (1)
  1. LUSTRAL (SERTRALINE) [Suspect]
     Indication: ILL-DEFINED DISORDER
     Dosage: ORAL
     Route: 048
     Dates: end: 20030101

REACTIONS (2)
  - AGGRESSION [None]
  - DRUG WITHDRAWAL SYNDROME [None]
